FAERS Safety Report 24554573 (Version 1)
Quarter: 2024Q4

REPORT INFORMATION
  Report Type: Report from Study
  Country: CN (occurrence: CN)
  Receive Date: 20241028
  Receipt Date: 20241028
  Transmission Date: 20250115
  Serious: Yes (Life-Threatening)
  Sender: ROCHE
  Company Number: CN-ROCHE-10000109370

PATIENT
  Age: 81 Year
  Sex: Male
  Weight: 59 kg

DRUGS (1)
  1. COLUMVI [Suspect]
     Active Substance: GLOFITAMAB-GXBM
     Indication: Diffuse large B-cell lymphoma
     Route: 042
     Dates: start: 20241015

REACTIONS (1)
  - Septic shock [Not Recovered/Not Resolved]

NARRATIVE: CASE EVENT DATE: 20241016
